FAERS Safety Report 9023793 (Version 1)
Quarter: 2013Q1

REPORT INFORMATION
  Report Type: Spontaneous
  Country: US (occurrence: US)
  Receive Date: 20130121
  Receipt Date: 20130121
  Transmission Date: 20140127
  Serious: Yes (Other)
  Sender: FDA-Public Use
  Company Number: US-PFIZER INC-2013024442

PATIENT
  Age: 64 Year
  Sex: Male

DRUGS (3)
  1. LYRICA [Suspect]
     Indication: NEUROPATHY PERIPHERAL
     Dosage: UNK
     Dates: start: 2011
  2. LYRICA [Suspect]
     Indication: PAIN
  3. TYLENOL WITH CODEINE [Concomitant]
     Indication: PAIN
     Dosage: UNK

REACTIONS (1)
  - Blindness [Unknown]
